FAERS Safety Report 8464240 (Version 5)
Quarter: 2012Q4

REPORT INFORMATION
  Report Type: 
  Country: US (occurrence: US)
  Receive Date: 20120316
  Receipt Date: 20121025
  Transmission Date: 20130627
  Serious: Yes (Hospitalization, Other)
  Sender: FDA-Public Use
  Company Number: US-009507513-1203USA01842

PATIENT

DRUGS (4)
  1. FOSAMAX [Suspect]
     Indication: OSTEOPOROSIS
     Dosage: 70 mg, qw
     Route: 048
     Dates: start: 20010906
  2. FOSAMAX [Suspect]
     Dosage: 10 mg, qd
     Route: 048
     Dates: end: 20010906
  3. EVISTA [Concomitant]
     Indication: OSTEOPOROSIS
     Dosage: 60 mg, qd
     Route: 048
     Dates: end: 2006
  4. ALENDRONATE SODIUM [Suspect]
     Dosage: 70 mg, qw
     Route: 048
     Dates: start: 20090325, end: 20100728

REACTIONS (36)
  - Femur fracture [Unknown]
  - Intramedullary rod insertion [Unknown]
  - Intramedullary rod insertion [Unknown]
  - Deafness neurosensory [Unknown]
  - Device failure [Unknown]
  - Anaemia postoperative [Unknown]
  - Arthroscopic surgery [Unknown]
  - Femur fracture [Unknown]
  - Dental prosthesis placement [Unknown]
  - Oral surgery [Unknown]
  - Asthma [Unknown]
  - Sleep disorder [Unknown]
  - Joint range of motion decreased [Unknown]
  - Laceration [Unknown]
  - Incision site erythema [Recovering/Resolving]
  - Induration [Recovering/Resolving]
  - Wound infection [Recovering/Resolving]
  - Colitis ulcerative [Unknown]
  - Meniscus injury [Unknown]
  - Osteoarthritis [Unknown]
  - Carotid artery disease [Unknown]
  - Amnesia [Unknown]
  - Large intestine polyp [Unknown]
  - Arthropod bite [Unknown]
  - Chest discomfort [Unknown]
  - Acarodermatitis [Unknown]
  - Joint injury [Unknown]
  - Bronchitis [Unknown]
  - Bronchitis [Unknown]
  - Arthritis [Unknown]
  - Costochondritis [Unknown]
  - Asthma [Unknown]
  - Vertigo [Unknown]
  - Dizziness [Unknown]
  - Diarrhoea [Unknown]
  - Constipation [Recovered/Resolved]
